FAERS Safety Report 9865132 (Version 1)
Quarter: 2014Q1

REPORT INFORMATION
  Report Type: Spontaneous
  Country: US (occurrence: US)
  Receive Date: 20140203
  Receipt Date: 20140203
  Transmission Date: 20141002
  Serious: No
  Sender: FDA-Public Use
  Company Number: US-ALLERGAN-1303290US

PATIENT
  Age: 52 Year
  Sex: Female

DRUGS (10)
  1. RESTASIS [Suspect]
     Indication: DRY EYE
     Dosage: 2 GTT, QHS
     Route: 047
  2. RESTASIS [Suspect]
     Dosage: 2 GTT, BID
     Route: 047
     Dates: start: 201209
  3. EQUATE HIGH PERFORMANCE LUBRICANT EYEDROPS [Suspect]
     Indication: DRY EYE
     Dosage: 2 GTT, PRN
     Route: 047
     Dates: start: 201209
  4. FRESH COAT LUBRICANT EYEDROP [Suspect]
     Indication: DRY EYE
     Dosage: 2 GTT, PRN
     Route: 047
     Dates: start: 201209
  5. POLYPROPYLENE 0.3% EYEDROPS [Suspect]
     Indication: EYE IRRIGATION
     Dosage: UNK, QD
     Route: 047
     Dates: start: 201209
  6. MELOXICAM [Concomitant]
     Indication: ANTIINFLAMMATORY THERAPY
     Dosage: 15 MG, QD
     Route: 048
  7. MELOXICAM [Concomitant]
     Indication: TENDONITIS
  8. PANTAPRAZOLE [Concomitant]
     Indication: GASTROOESOPHAGEAL REFLUX DISEASE
     Dosage: 40 MG, QD
     Route: 048
  9. PAIN PILL NOS [Concomitant]
     Indication: TENDONITIS
     Dosage: UNK, PRN
     Route: 048
  10. ZOVIRAX OINTMENT [Concomitant]
     Indication: ORAL HERPES
     Dosage: UNK, PRN
     Route: 061

REACTIONS (7)
  - Inappropriate schedule of drug administration [Unknown]
  - Asthenopia [Unknown]
  - Dark circles under eyes [Unknown]
  - Eye discharge [Unknown]
  - Lacrimation increased [Unknown]
  - Vision blurred [Unknown]
  - Eye pain [Unknown]
